FAERS Safety Report 7772340-X (Version None)
Quarter: 2011Q3

REPORT INFORMATION
  Report Type: 
  Country: None (occurrence: None)
  Receive Date: 20110922
  Receipt Date: 20110718
  Transmission Date: 20111222
  Serious: No
  Sender: FDA-Public Use
  Company Number: US-ASTRAZENECA-2011SE43019

PATIENT
  Age: 12480 Day
  Sex: Female

DRUGS (10)
  1. ADDERALL 5 [Concomitant]
     Dates: start: 20070305
  2. OXYCODONE HCL [Concomitant]
     Dates: start: 20070305
  3. SEROQUEL [Suspect]
     Route: 048
     Dates: start: 20070305
  4. METHADONE HCL [Concomitant]
     Dates: start: 20070711
  5. IMITREX [Concomitant]
     Dates: start: 20070305
  6. TEGRETOL [Concomitant]
     Dates: start: 20070305
  7. OXYCONTIN [Concomitant]
     Dates: start: 20070305
  8. SPIRONOLACTONE [Concomitant]
     Dates: start: 20070305
  9. ALDACTONE [Concomitant]
     Dates: start: 20070711
  10. XANAX [Concomitant]
     Dates: start: 20070711

REACTIONS (3)
  - BACK PAIN [None]
  - ARTHRALGIA [None]
  - JOINT STIFFNESS [None]
